FAERS Safety Report 5573415-6 (Version None)
Quarter: 2007Q4

REPORT INFORMATION
  Report Type: 
  Country: None (occurrence: None)
  Receive Date: 20071220
  Receipt Date: 20071220
  Transmission Date: 20080405
  Serious: Yes (Hospitalization)
  Sender: FDA-Public Use
  Company Number: None

PATIENT
  Age: 54 Year
  Sex: Male

DRUGS (1)
  1. MORPHINE [Suspect]
     Indication: PAIN
     Dosage: 4MG  ONCE   IM
     Route: 030
     Dates: start: 20071028, end: 20071028

REACTIONS (7)
  - HYPOTENSION [None]
  - IRRITABILITY [None]
  - OXYGEN SATURATION DECREASED [None]
  - PAIN IN EXTREMITY [None]
  - RESPIRATORY DEPRESSION [None]
  - SEDATION [None]
  - TREMOR [None]
